FAERS Safety Report 6739170-9 (Version None)
Quarter: 2010Q2

REPORT INFORMATION
  Report Type: 
  Country: None (occurrence: None)
  Receive Date: 20100525
  Receipt Date: 20100518
  Transmission Date: 20101027
  Serious: Yes (Other)
  Sender: FDA-Public Use
  Company Number: KR-JNJFOC-20100506299

PATIENT
  Age: 90 Year
  Sex: Female

DRUGS (2)
  1. DURAGESIC-100 [Suspect]
     Indication: BACK PAIN
     Route: 062
  2. UNKNOWN MEDICATION [Concomitant]
     Indication: MEMORY IMPAIRMENT
     Route: 065

REACTIONS (2)
  - COMMUNICATION DISORDER [None]
  - DEPRESSION [None]
